FAERS Safety Report 19030606 (Version 1)
Quarter: 2021Q1

REPORT INFORMATION
  Report Type: Spontaneous
  Country: US (occurrence: US)
  Receive Date: 20210318
  Receipt Date: 20210318
  Transmission Date: 20210420
  Serious: Yes (Life-Threatening, Hospitalization)
  Sender: FDA-Public Use
  Company Number: None

PATIENT
  Age: 43 Year
  Sex: Male

DRUGS (1)
  1. WARFARIN (WARFARIN NA (EXELAN) 2MG TAB) [Suspect]
     Active Substance: WARFARIN SODIUM
     Indication: AORTIC VALVE REPLACEMENT
     Dates: start: 20190107, end: 20210317

REACTIONS (5)
  - Haemorrhage intracranial [None]
  - Thalamus haemorrhage [None]
  - Fall [None]
  - Blood pressure increased [None]
  - Intraventricular haemorrhage [None]

NARRATIVE: CASE EVENT DATE: 20210313
